FAERS Safety Report 7999018-1 (Version None)
Quarter: 2011Q4

REPORT INFORMATION
  Report Type: 
  Country: None (occurrence: None)
  Receive Date: 20111221
  Receipt Date: 20111028
  Transmission Date: 20120403
  Serious: Yes (Hospitalization, Other)
  Sender: FDA-Public Use
  Company Number: US-NAPPMUNDI-USA_2008_0033365

PATIENT
  Sex: Female

DRUGS (5)
  1. GLUCOPHAGE [Concomitant]
  2. OXYCONTIN [Suspect]
     Indication: PANCREATITIS CHRONIC
     Dosage: 40 MG, TID
     Dates: start: 20040702, end: 20050321
  3. AMBIEN [Concomitant]
  4. LEXAPRO [Concomitant]
  5. ATIVAN [Concomitant]

REACTIONS (11)
  - DELUSIONAL DISORDER, UNSPECIFIED TYPE [None]
  - DRUG WITHDRAWAL SYNDROME [None]
  - OBSESSIVE-COMPULSIVE DISORDER [None]
  - DRUG DEPENDENCE [None]
  - SUICIDE ATTEMPT [None]
  - PAIN [None]
  - ANHEDONIA [None]
  - INTENTIONAL OVERDOSE [None]
  - PARANOIA [None]
  - ANXIETY [None]
  - DEPRESSION [None]
